FAERS Safety Report 10412865 (Version 1)
Quarter: 2014Q3

REPORT INFORMATION
  Report Type: Spontaneous
  Country: US (occurrence: None)
  Receive Date: 20140826
  Receipt Date: 20140826
  Transmission Date: 20150326
  Serious: Yes (Other)
  Sender: FDA-Public Use
  Company Number: None

PATIENT
  Age: 3 Year
  Sex: Female
  Weight: 18.14 kg

DRUGS (1)
  1. SINGULAIR [Suspect]
     Active Substance: MONTELUKAST SODIUM
     Indication: MULTIPLE ALLERGIES
     Route: 048
     Dates: start: 20140812, end: 20140821

REACTIONS (5)
  - Psychomotor hyperactivity [None]
  - Abnormal behaviour [None]
  - Abnormal dreams [None]
  - Hallucination [None]
  - Insomnia [None]

NARRATIVE: CASE EVENT DATE: 20140811
